APPROVED DRUG PRODUCT: CARBOPLATIN
Active Ingredient: CARBOPLATIN
Strength: 150MG/15ML (10MG/ML)
Dosage Form/Route: INJECTABLE;INTRAVENOUS
Application: A076517 | Product #002 | TE Code: AP
Applicant: HOSPIRA INC
Approved: Oct 14, 2004 | RLD: No | RS: Yes | Type: RX